FAERS Safety Report 19750867 (Version 1)
Quarter: 2021Q3

REPORT INFORMATION
  Report Type: Spontaneous
  Country: US (occurrence: US)
  Receive Date: 20210826
  Receipt Date: 20210826
  Transmission Date: 20211014
  Serious: No
  Sender: FDA-Public Use
  Company Number: NVSC2021US192621

PATIENT
  Age: 88 Year
  Sex: Female

DRUGS (1)
  1. VOLTAREN [Suspect]
     Active Substance: DICLOFENAC SODIUM
     Indication: ARTHRITIS
     Dosage: UNK
     Route: 061
     Dates: start: 20210813

REACTIONS (5)
  - Wrong technique in device usage process [Unknown]
  - Blood pressure decreased [Unknown]
  - Insomnia [Unknown]
  - Nausea [Unknown]
  - Rash [Unknown]
